FAERS Safety Report 20348270 (Version 1)
Quarter: 2022Q1

REPORT INFORMATION
  Report Type: Spontaneous
  Country: US (occurrence: US)
  Receive Date: 20220119
  Receipt Date: 20220119
  Transmission Date: 20220423
  Serious: No
  Sender: FDA-Public Use
  Company Number: ENDG21-07467

PATIENT
  Sex: Female

DRUGS (1)
  1. DOXYLAMINE SUCCINATE AND PYRIDOXINE HYDROCHLORIDE [Suspect]
     Active Substance: DOXYLAMINE SUCCINATE\PYRIDOXINE HYDROCHLORIDE
     Indication: Morning sickness
     Dosage: 2 DF, QHS
     Route: 048
     Dates: start: 20211019, end: 20211102

REACTIONS (2)
  - Drug ineffective [Unknown]
  - Exposure during pregnancy [Unknown]

NARRATIVE: CASE EVENT DATE: 20210101
